FAERS Safety Report 25881232 (Version 1)
Quarter: 2025Q4

REPORT INFORMATION
  Report Type: Spontaneous
  Country: US (occurrence: US)
  Receive Date: 20251004
  Receipt Date: 20251004
  Transmission Date: 20260118
  Serious: Yes (Other)
  Sender: AMGEN
  Company Number: US-AMGEN-USASP2025191683

PATIENT
  Age: 79 Year
  Sex: Male

DRUGS (2)
  1. PREDNISONE [Suspect]
     Active Substance: PREDNISONE
     Indication: Prostate cancer
     Dosage: 5 MILLIGRAM, BID
     Route: 048
  2. TAXOTERE [Suspect]
     Active Substance: DOCETAXEL
     Indication: Prostate cancer
     Dosage: 75 MILLIGRAM PER MILLILITRE, Q3WK, (OVER 1 HOUR)
     Route: 040

REACTIONS (2)
  - Pigmentary maculopathy [Recovered/Resolved]
  - Off label use [Unknown]
